FAERS Safety Report 4541786-5 (Version None)
Quarter: 2004Q4

REPORT INFORMATION
  Report Type: 
  Country: None (occurrence: None)
  Receive Date: 20041227
  Receipt Date: 20041213
  Transmission Date: 20050328
  Serious: Yes (Hospitalization)
  Sender: FDA-Public Use
  Company Number: 2004112572

PATIENT
  Sex: Female

DRUGS (2)
  1. ZELDOX (CAPSULES) (ZIPRASIDONE) [Suspect]
     Indication: ILL-DEFINED DISORDER
     Dosage: 120 MG (4 IN 1 ), ORAL
     Route: 048
  2. LEVOMEPROMAZINE (LEVOMEPROMAZINE) [Concomitant]

REACTIONS (5)
  - ABNORMAL BEHAVIOUR [None]
  - BLOOD SODIUM DECREASED [None]
  - FALL [None]
  - POLYDIPSIA [None]
  - SLEEP DISORDER [None]
